FAERS Safety Report 14815074 (Version 1)
Quarter: 2018Q2

REPORT INFORMATION
  Report Type: Spontaneous
  Country: DE (occurrence: DE)
  Receive Date: 20180426
  Receipt Date: 20180426
  Transmission Date: 20180711
  Serious: Yes (Hospitalization, Other)
  Sender: FDA-Public Use
  Company Number: DE-TEVA-2018-DE-885123

PATIENT
  Sex: Female

DRUGS (1)
  1. COPAXONE [Suspect]
     Active Substance: GLATIRAMER ACETATE
     Indication: MULTIPLE SCLEROSIS
     Dates: start: 20150801, end: 20170301

REACTIONS (2)
  - Multiple sclerosis relapse [Recovered/Resolved]
  - Trigeminal neuritis [Recovered/Resolved]

NARRATIVE: CASE EVENT DATE: 2017
